FAERS Safety Report 6806858-0 (Version None)
Quarter: 2010Q2

REPORT INFORMATION
  Report Type: 
  Country: None (occurrence: None)
  Receive Date: 20100629
  Receipt Date: 20080522
  Transmission Date: 20101027
  Serious: Yes (Other)
  Sender: FDA-Public Use
  Company Number: US-PFIZER INC-2008041517

PATIENT
  Sex: Male
  Weight: 113.63 kg

DRUGS (9)
  1. VIAGRA [Suspect]
     Indication: ERECTILE DYSFUNCTION
  2. LIPITOR [Concomitant]
  3. ACTOS [Concomitant]
  4. SYNTHROID [Concomitant]
  5. METOPROLOL [Concomitant]
  6. METFORMIN HCL [Concomitant]
  7. GEMFIBROZIL [Concomitant]
  8. SINGULAIR [Concomitant]
  9. HUMALOG MIX [Concomitant]

REACTIONS (5)
  - ASTHMA [None]
  - DRUG INEFFECTIVE [None]
  - HERPES VIRUS INFECTION [None]
  - PAIN [None]
  - WEIGHT DECREASED [None]
